FAERS Safety Report 7207562-X (Version None)
Quarter: 2011Q1

REPORT INFORMATION
  Report Type: 
  Country: None (occurrence: None)
  Receive Date: 20110103
  Receipt Date: 20101227
  Transmission Date: 20110831
  Serious: Yes (Other)
  Sender: FDA-Public Use
  Company Number: AU-GENZYME-FLUD-1000563

PATIENT

DRUGS (1)
  1. FLUDARA [Suspect]
     Indication: WALDENSTROM'S MACROGLOBULINAEMIA
     Dosage: 25 MG/M2, QD DAYS 1-3
     Route: 042

REACTIONS (7)
  - INFUSION RELATED REACTION [None]
  - NAUSEA [None]
  - INFECTION [None]
  - HEPATOTOXICITY [None]
  - NEUTROPENIA [None]
  - THROMBOCYTOPENIA [None]
  - NEPHROPATHY TOXIC [None]
